FAERS Safety Report 12767328 (Version 4)
Quarter: 2017Q1

REPORT INFORMATION
  Report Type: Spontaneous
  Country: US (occurrence: US)
  Receive Date: 20160921
  Receipt Date: 20170116
  Transmission Date: 20170428
  Serious: No
  Sender: FDA-Public Use
  Company Number: US-GLAXOSMITHKLINE-US2016135260

PATIENT
  Age: 45 Year
  Sex: Female

DRUGS (2)
  1. TRANSDERM SCOP [Suspect]
     Active Substance: SCOPOLAMINE
     Indication: PROPHYLAXIS
     Dosage: UNK
     Dates: start: 2011
  2. TRANSDERM SCOP [Suspect]
     Active Substance: SCOPOLAMINE
     Dosage: UNK, 1 PATCH EVERY 3 DAYS
     Dates: start: 201609

REACTIONS (9)
  - Dermatitis contact [Not Recovered/Not Resolved]
  - Incorrect drug administration duration [Unknown]
  - Hypersensitivity [Not Recovered/Not Resolved]
  - Product quality issue [Unknown]
  - Intentional product use issue [Unknown]
  - Application site dryness [Not Recovered/Not Resolved]
  - Application site discharge [Not Recovered/Not Resolved]
  - Drug administration error [Unknown]
  - Application site scab [Not Recovered/Not Resolved]
